FAERS Safety Report 21498811 (Version 1)
Quarter: 2022Q4

REPORT INFORMATION
  Report Type: Spontaneous
  Country: US (occurrence: US)
  Receive Date: 20221024
  Receipt Date: 20221024
  Transmission Date: 20230112
  Serious: No
  Sender: FDA-Public Use
  Company Number: US-BAYER-2022A142997

PATIENT
  Age: 20 Year
  Sex: Female

DRUGS (1)
  1. MIRENA [Suspect]
     Active Substance: LEVONORGESTREL
     Indication: Contraception
     Dosage: 20?G/DAY
     Route: 015
     Dates: start: 20220913, end: 20221005

REACTIONS (3)
  - Device dislocation [Recovered/Resolved]
  - Pelvic pain [None]
  - Abdominal pain lower [None]

NARRATIVE: CASE EVENT DATE: 20221005
